FAERS Safety Report 23312296 (Version 1)
Quarter: 2023Q4

REPORT INFORMATION
  Report Type: Spontaneous
  Country: US (occurrence: US)
  Receive Date: 20231219
  Receipt Date: 20231219
  Transmission Date: 20240110
  Serious: No
  Sender: FDA-Public Use
  Company Number: US-ALVOGEN-2023091371

PATIENT
  Sex: Male

DRUGS (2)
  1. FENTANYL [Suspect]
     Active Substance: FENTANYL\FENTANYL CITRATE
     Indication: Back pain
     Dosage: EXPIRATION DATE: UU-MAY-2025?25 MCG/HOUR
  2. FENTANYL [Suspect]
     Active Substance: FENTANYL\FENTANYL CITRATE
     Indication: Back pain
     Dates: start: 20230421

REACTIONS (4)
  - Paraesthesia [Unknown]
  - Insomnia [Unknown]
  - Withdrawal syndrome [Unknown]
  - Drug effect less than expected [Unknown]
